FAERS Safety Report 18115201 (Version 1)
Quarter: 2020Q3

REPORT INFORMATION
  Report Type: Spontaneous
  Country: GB (occurrence: GB)
  Receive Date: 20200805
  Receipt Date: 20200805
  Transmission Date: 20201103
  Serious: Yes (Other)
  Sender: FDA-Public Use
  Company Number: GB-MYLANLABS-2020M1024562

PATIENT
  Sex: Male

DRUGS (1)
  1. CLOZARIL [Suspect]
     Active Substance: CLOZAPINE
     Indication: SCHIZOPHRENIA
     Dosage: UNK
     Route: 048
     Dates: start: 20090121

REACTIONS (6)
  - Tardive dyskinesia [Unknown]
  - Movement disorder [Unknown]
  - Malaise [Unknown]
  - Gait disturbance [Unknown]
  - Withdrawal syndrome [Unknown]
  - Paralysis [Unknown]
